FAERS Safety Report 17230136 (Version 2)
Quarter: 2020Q1

REPORT INFORMATION
  Report Type: Spontaneous
  Country: VN (occurrence: VN)
  Receive Date: 20200103
  Receipt Date: 20200116
  Transmission Date: 20200409
  Serious: Yes (Hospitalization)
  Sender: FDA-Public Use
  Company Number: VN-ROCHE-2481901

PATIENT
  Sex: Male

DRUGS (6)
  1. PEMBROLIZUMAB. [Concomitant]
     Active Substance: PEMBROLIZUMAB
     Indication: NON-SMALL CELL LUNG CANCER METASTATIC
  2. TECENTRIQ [Suspect]
     Active Substance: ATEZOLIZUMAB
     Indication: NON-SMALL CELL LUNG CANCER METASTATIC
     Dosage: COMBINED WITH BEVACIZUMAB AND PEMETREXED
     Route: 042
     Dates: start: 20191118
  3. PEMETREXED. [Concomitant]
     Active Substance: PEMETREXED
     Indication: NON-SMALL CELL LUNG CANCER METASTATIC
  4. CARBOPLATIN. [Concomitant]
     Active Substance: CARBOPLATIN
  5. ABEVMY [Suspect]
     Active Substance: BEVACIZUMAB
     Indication: NON-SMALL CELL LUNG CANCER METASTATIC
     Route: 065
     Dates: start: 20191118
  6. ABEVMY [Suspect]
     Active Substance: BEVACIZUMAB
     Route: 042
     Dates: start: 20191119

REACTIONS (3)
  - Product use issue [Unknown]
  - Off label use [Unknown]
  - Pyrexia [Recovered/Resolved]

NARRATIVE: CASE EVENT DATE: 20191118
